FAERS Safety Report 26215570 (Version 1)
Quarter: 2025Q4

REPORT INFORMATION
  Report Type: Report from Study
  Country: JP (occurrence: JP)
  Receive Date: 20251231
  Receipt Date: 20251231
  Transmission Date: 20260118
  Serious: Yes (Death, Hospitalization, Other)
  Sender: BOEHRINGER INGELHEIM
  Company Number: JP-CMIC11990387-09001006

PATIENT
  Age: 70 Year
  Sex: Female
  Weight: 35.3 kg

DRUGS (79)
  1. OFEV [Suspect]
     Active Substance: NINTEDANIB
     Indication: Systemic scleroderma
     Dates: start: 20211202, end: 20211206
  2. OFEV [Suspect]
     Active Substance: NINTEDANIB
     Indication: Interstitial lung disease
     Dates: start: 20211207, end: 20220304
  3. OFEV [Suspect]
     Active Substance: NINTEDANIB
     Dates: start: 20220420, end: 20220517
  4. OFEV [Suspect]
     Active Substance: NINTEDANIB
     Dates: start: 20220518, end: 20220912
  5. OFEV [Suspect]
     Active Substance: NINTEDANIB
     Dates: start: 20220927, end: 20220930
  6. OFEV [Suspect]
     Active Substance: NINTEDANIB
     Dates: start: 20221001, end: 20221130
  7. OFEV [Suspect]
     Active Substance: NINTEDANIB
     Dates: start: 20230105, end: 20230131
  8. PREDONINE [Suspect]
     Active Substance: PREDNISOLONE
     Indication: Interstitial lung disease
     Dates: start: 20211207, end: 20211220
  9. PREDONINE [Suspect]
     Active Substance: PREDNISOLONE
     Dosage: DAILY DOSE: 30
     Dates: start: 20211221, end: 20211227
  10. PREDONINE [Suspect]
     Active Substance: PREDNISOLONE
     Dates: start: 20211228, end: 20220111
  11. PREDONINE [Suspect]
     Active Substance: PREDNISOLONE
     Dates: start: 20220112, end: 20220125
  12. PREDONINE [Suspect]
     Active Substance: PREDNISOLONE
     Dates: start: 20220126, end: 20220223
  13. PREDONINE [Suspect]
     Active Substance: PREDNISOLONE
     Dates: start: 20220224, end: 20220304
  14. PREDONINE [Suspect]
     Active Substance: PREDNISOLONE
     Dates: start: 20220126, end: 20220208
  15. PREDONINE [Suspect]
     Active Substance: PREDNISOLONE
     Dates: start: 20220224, end: 20220304
  16. CELLCEPT [Concomitant]
     Active Substance: MYCOPHENOLATE MOFETIL
     Indication: Interstitial lung disease
  17. VONOPRAZAN FUMARATE [Concomitant]
     Active Substance: VONOPRAZAN FUMARATE
     Indication: Product used for unknown indication
  18. LAC B [BIFIDOBACTERIUM LACTIS] [Concomitant]
     Indication: Systemic scleroderma
     Dosage: DAILY DOSE: 3 TABLETS
  19. TRIMEBUTINE [Concomitant]
     Active Substance: TRIMEBUTINE
     Indication: Systemic scleroderma
  20. CANDESARTAN [Concomitant]
     Active Substance: CANDESARTAN
     Indication: Systemic scleroderma
  21. BISOPROLOL FUMARATE [Concomitant]
     Active Substance: BISOPROLOL FUMARATE
     Indication: Product used for unknown indication
  22. BISOPROLOL FUMARATE [Concomitant]
     Active Substance: BISOPROLOL FUMARATE
     Dates: start: 20220323, end: 20220419
  23. ELDECALCITOL [Concomitant]
     Active Substance: ELDECALCITOL
     Indication: Prophylaxis
     Dates: start: 20211210, end: 20220118
  24. SALIGREN [Concomitant]
     Indication: Product used for unknown indication
     Dates: start: 20211216, end: 20220308
  25. PIPERACILLIN SODIUM\TAZOBACTAM SODIUM [Concomitant]
     Active Substance: PIPERACILLIN SODIUM\TAZOBACTAM SODIUM
     Indication: Product used for unknown indication
     Dates: end: 20211206
  26. PIPERACILLIN SODIUM\TAZOBACTAM SODIUM [Concomitant]
     Active Substance: PIPERACILLIN SODIUM\TAZOBACTAM SODIUM
     Dates: start: 20220311, end: 20220311
  27. SODIUM CHLORIDE [Concomitant]
     Active Substance: SODIUM CHLORIDE
     Indication: Product used for unknown indication
     Dates: end: 20211206
  28. HEPARIN SODIUM [Concomitant]
     Active Substance: HEPARIN SODIUM
     Indication: Product used for unknown indication
     Dates: end: 20211206
  29. ENTRESTO [Concomitant]
     Active Substance: SACUBITRIL\VALSARTAN
     Indication: Systemic scleroderma
     Dates: start: 20211203, end: 20220113
  30. ENTRESTO [Concomitant]
     Active Substance: SACUBITRIL\VALSARTAN
     Dates: start: 20220114, end: 20220307
  31. ENTRESTO [Concomitant]
     Active Substance: SACUBITRIL\VALSARTAN
     Dates: start: 20220323, end: 20220915
  32. CODEINE PHOSPHATE [Concomitant]
     Active Substance: CODEINE PHOSPHATE
     Indication: Prophylaxis
  33. CODEINE PHOSPHATE [Concomitant]
     Active Substance: CODEINE PHOSPHATE
     Dates: start: 20211204, end: 20211206
  34. CODEINE PHOSPHATE [Concomitant]
     Active Substance: CODEINE PHOSPHATE
     Dates: start: 20211207, end: 20211220
  35. MAGNESIUM OXIDE [Concomitant]
     Active Substance: MAGNESIUM OXIDE
     Indication: Product used for unknown indication
  36. MAGNESIUM OXIDE [Concomitant]
     Active Substance: MAGNESIUM OXIDE
     Indication: Prophylaxis
     Dates: start: 20211204, end: 20211206
  37. MAGNESIUM OXIDE [Concomitant]
     Active Substance: MAGNESIUM OXIDE
     Dosage: DAILY DOSE: 330MG (AS NEEDED)
  38. MAGNESIUM OXIDE [Concomitant]
     Active Substance: MAGNESIUM OXIDE
     Dates: start: 20211223, end: 20220307
  39. BELSOMRA [Concomitant]
     Active Substance: SUVOREXANT
     Indication: Product used for unknown indication
     Dates: start: 20211210, end: 20211212
  40. BROTIZOLAM OD SAWAI [Concomitant]
     Indication: Product used for unknown indication
     Dates: start: 20211213, end: 20221023
  41. FUNGIZONE [Concomitant]
     Active Substance: AMPHOTERICIN B
     Indication: Prophylaxis
     Dates: start: 20211213, end: 20211227
  42. FUNGIZONE [Concomitant]
     Active Substance: AMPHOTERICIN B
     Dates: start: 20220209, end: 20220227
  43. FUNGIZONE [Concomitant]
     Active Substance: AMPHOTERICIN B
     Dates: start: 20220325, end: 20220401
  44. PURIFIED WATER [Concomitant]
     Active Substance: WATER
     Indication: Prophylaxis
     Dates: start: 20211213, end: 20211227
  45. SULFAMETHOXAZOLE\TRIMETHOPRIM [Concomitant]
     Active Substance: SULFAMETHOXAZOLE\TRIMETHOPRIM
     Indication: Prophylaxis
     Dosage: DAILY DOSE: 1 TABLET (3 TIMES A WEEK)
     Dates: start: 20211214, end: 20220312
  46. METGLUCO [Concomitant]
     Active Substance: METFORMIN HYDROCHLORIDE
     Indication: Product used for unknown indication
     Dates: start: 20211216, end: 20211216
  47. METGLUCO [Concomitant]
     Active Substance: METFORMIN HYDROCHLORIDE
     Dates: start: 20211217, end: 20211222
  48. METGLUCO [Concomitant]
     Active Substance: METFORMIN HYDROCHLORIDE
     Dates: start: 20211223, end: 20211227
  49. METGLUCO [Concomitant]
     Active Substance: METFORMIN HYDROCHLORIDE
     Dates: start: 20211228, end: 20220307
  50. LEVOTHYROXINE SODIUM [Concomitant]
     Active Substance: LEVOTHYROXINE SODIUM
     Indication: Prophylaxis
     Dates: start: 20211216, end: 20230118
  51. LEVOTHYROXINE SODIUM [Concomitant]
     Active Substance: LEVOTHYROXINE SODIUM
     Dates: start: 20220119, end: 20221118
  52. REBAMIPIDE [Concomitant]
     Active Substance: REBAMIPIDE
     Indication: Prophylaxis
     Dosage: OCULARLY, 4 TIMES A DAY, BOTH EYES
     Dates: start: 20211222, end: 20220409
  53. DEXAMETHASONE [Concomitant]
     Active Substance: DEXAMETHASONE
     Indication: Prophylaxis
     Dosage: ORAL CAVITY APPLICATION, AS NEEDED
     Dates: start: 20220104, end: 20220118
  54. LEVOFLOXACIN HEMIHYDRATE [Concomitant]
     Active Substance: LEVOFLOXACIN
     Indication: Prophylaxis
     Dates: start: 20220120, end: 20220131
  55. ALFACALCIDOL [Concomitant]
     Active Substance: ALFACALCIDOL
     Indication: Prophylaxis
     Dates: start: 20220119, end: 20220301
  56. ALFACALCIDOL [Concomitant]
     Active Substance: ALFACALCIDOL
     Dates: start: 20220302, end: 20230131
  57. DAIMEDIN [Concomitant]
     Indication: Product used for unknown indication
     Dosage: DAILY DOSE: 1 CAPSULE
     Dates: start: 20220119, end: 20220208
  58. CALONAL [Concomitant]
     Active Substance: ACETAMINOPHEN
     Indication: Product used for unknown indication
     Dosage: DAILY DOSE: 3 TABLETS
     Dates: start: 20220122, end: 20220126
  59. CALONAL [Concomitant]
     Active Substance: ACETAMINOPHEN
  60. CLARITHROMYCIN [Concomitant]
     Active Substance: CLARITHROMYCIN
     Indication: Product used for unknown indication
     Dates: start: 20220201, end: 20220214
  61. BENZETHONIUM CHLORIDE [Concomitant]
     Active Substance: BENZETHONIUM CHLORIDE
     Indication: Product used for unknown indication
     Dates: start: 20220201, end: 20220414
  62. FLAGYL [Concomitant]
     Active Substance: METRONIDAZOLE\METRONIDAZOLE HYDROCHLORIDE
     Indication: Prophylaxis
     Dates: start: 20220225, end: 20220305
  63. MIYA-BM [Concomitant]
     Active Substance: CLOSTRIDIUM BUTYRICUM SPORES STRAIN M-55
     Indication: Systemic scleroderma
     Dates: start: 20220305, end: 20221118
  64. PREDONINE [Concomitant]
     Active Substance: PREDNISOLONE
     Indication: Interstitial lung disease
     Dates: start: 20220305, end: 20220305
  65. PREDONINE [Concomitant]
     Active Substance: PREDNISOLONE
     Dates: start: 20220308, end: 20220311
  66. PREDONINE [Concomitant]
     Active Substance: PREDNISOLONE
  67. PREDONINE [Concomitant]
     Active Substance: PREDNISOLONE
     Dates: start: 20220318, end: 20220329
  68. SODIUM CHLORIDE [Concomitant]
     Active Substance: SODIUM CHLORIDE
     Indication: Interstitial lung disease
     Dates: start: 20220305, end: 20220305
  69. ISOTONIC SODIUM CHLORIDE SOLUTION [Concomitant]
     Active Substance: SODIUM CHLORIDE
     Indication: Interstitial lung disease
     Dates: start: 20220308, end: 20220311
  70. VALGANCICLOVIR HYDROCHLORIDE [Concomitant]
     Active Substance: VALGANCICLOVIR HYDROCHLORIDE
     Indication: Product used for unknown indication
     Dates: start: 20220309, end: 20220314
  71. HUMULIN R [Concomitant]
     Active Substance: INSULIN HUMAN
     Indication: Product used for unknown indication
     Dates: start: 20220316, end: 20220329
  72. HUMULIN R [Concomitant]
     Active Substance: INSULIN HUMAN
  73. MEROPENEM [Concomitant]
     Active Substance: MEROPENEM
     Indication: Product used for unknown indication
     Dates: start: 20220311, end: 20220322
  74. VANCOMYCIN [Concomitant]
     Active Substance: VANCOMYCIN
     Indication: Product used for unknown indication
     Dates: start: 20220314, end: 20220322
  75. VANCOMYCIN [Concomitant]
     Active Substance: VANCOMYCIN
     Dates: start: 20220311, end: 20220311
  76. SODIUM FERROUS CITRATE [Concomitant]
     Active Substance: SODIUM FERROUS CITRATE
     Indication: Product used for unknown indication
     Dates: start: 20220314, end: 20220611
  77. DENOSINE [Concomitant]
     Indication: Product used for unknown indication
     Dates: start: 20220314, end: 20220324
  78. POTASSIUM CHLORIDE\SODIUM BICARBONATE\SODIUM SULFATE [Concomitant]
     Active Substance: POTASSIUM CHLORIDE\SODIUM BICARBONATE\SODIUM SULFATE
     Indication: Product used for unknown indication
     Dates: start: 20220315, end: 20220315
  79. SENNOSIDES [Concomitant]
     Active Substance: SENNOSIDES
     Indication: Product used for unknown indication
     Dates: start: 20220315, end: 20220315

REACTIONS (8)
  - Pneumonia [Fatal]
  - Enterocolitis [Recovered/Resolved]
  - Lung cyst [Recovered/Resolved]
  - Pneumonia [Recovered/Resolved]
  - Pneumothorax [Recovered/Resolved]
  - Pneumonia [Recovered/Resolved]
  - Pneumonia [Not Recovered/Not Resolved]
  - Pneumothorax [Recovered/Resolved]

NARRATIVE: CASE EVENT DATE: 20220307
